FAERS Safety Report 23202550 (Version 3)
Quarter: 2023Q4

REPORT INFORMATION
  Report Type: Other
  Country: US (occurrence: None)
  Receive Date: 20231120
  Receipt Date: 20231201
  Transmission Date: 20240110
  Serious: Yes (Hospitalization)
  Sender: FDA-Public Use
  Company Number: US-ROCHE-3457793

PATIENT
  Age: 53 Year
  Sex: Female
  Weight: 100.79 kg

DRUGS (4)
  1. OCREVUS [Suspect]
     Active Substance: OCRELIZUMAB
     Indication: Relapsing multiple sclerosis
     Dosage: DATE OF TREATMENT: 15/FEB/2022, 16/AUG/2022, 20/FEB/2023 AND 21/AUG/2023, /FEB/2024
     Route: 042
     Dates: start: 202001
  2. IMATINIB MESYLATE [Concomitant]
     Active Substance: IMATINIB MESYLATE
  3. DALFAMPRIDINE [Concomitant]
     Active Substance: DALFAMPRIDINE
  4. ARMODAFINIL [Concomitant]
     Active Substance: ARMODAFINIL

REACTIONS (6)
  - Weight increased [Recovered/Resolved]
  - Purulence [Recovered/Resolved]
  - Herpes zoster [Recovered/Resolved]
  - Scar [Not Recovered/Not Resolved]
  - Respiratory tract infection [Recovered/Resolved]
  - Fall [Unknown]

NARRATIVE: CASE EVENT DATE: 20230901
